FAERS Safety Report 6157339-1 (Version None)
Quarter: 2009Q2

REPORT INFORMATION
  Report Type: 
  Country: None (occurrence: None)
  Receive Date: 20090416
  Receipt Date: 20090410
  Transmission Date: 20091009
  Serious: Yes (Death, Other)
  Sender: FDA-Public Use
  Company Number: IT-CELGENEUS-083-CCAZA-09041260

PATIENT

DRUGS (2)
  1. VIDAZA [Suspect]
     Route: 051
  2. AZACITIDINE [Suspect]

REACTIONS (7)
  - ACUTE PULMONARY OEDEMA [None]
  - CONSTIPATION [None]
  - DISEASE PROGRESSION [None]
  - FEBRILE NEUTROPENIA [None]
  - MYOCARDIAL INFARCTION [None]
  - NEUTROPENIA [None]
  - THROMBOCYTOPENIA [None]
